FAERS Safety Report 11003253 (Version 1)
Quarter: 2015Q2

REPORT INFORMATION
  Report Type: Spontaneous
  Country: JP (occurrence: JP)
  Receive Date: 20150409
  Receipt Date: 20150409
  Transmission Date: 20150821
  Serious: Yes (Death, Other)
  Sender: FDA-Public Use
  Company Number: JP-CIPLA LTD.-2015JP02823

PATIENT

DRUGS (9)
  1. DOCETAXEL. [Suspect]
     Active Substance: DOCETAXEL
     Indication: CERVIX CARCINOMA STAGE II
     Dosage: 75 MG/M2 SEVEN CYCLES
  2. CARBOPLATIN. [Suspect]
     Active Substance: CARBOPLATIN
     Indication: CERVIX CARCINOMA STAGE II
     Dosage: AUC AT 5 MG/ML
  3. IRINOTECAN [Suspect]
     Active Substance: IRINOTECAN
     Indication: CERVIX CARCINOMA STAGE II
     Dosage: 160 MG/M2 ONE CYCLE
  4. NEDAPLATIN [Suspect]
     Active Substance: NEDAPLATIN
     Dosage: 80 MG/M2 THREE CYCLES
  5. CISPLATIN. [Suspect]
     Active Substance: CISPLATIN
     Indication: CERVIX CARCINOMA STAGE II
     Dosage: 70 MG/M2 SIX CYCLES
  6. CYTARABINE. [Suspect]
     Active Substance: CYTARABINE
     Indication: ACUTE MYELOID LEUKAEMIA
     Dosage: UNK
  7. IRINOTECAN [Suspect]
     Active Substance: IRINOTECAN
     Dosage: 160 MG/M2 THREE CYCLES
  8. NEDAPLATIN [Suspect]
     Active Substance: NEDAPLATIN
     Indication: CERVIX CARCINOMA STAGE II
     Dosage: 80 MG/M2 ONE CYCLE
  9. ACLARUBICIN [Suspect]
     Active Substance: ACLARUBICIN
     Indication: ACUTE MYELOID LEUKAEMIA
     Dosage: UNK

REACTIONS (12)
  - Acute myeloid leukaemia [Fatal]
  - Haematuria [Unknown]
  - Renal disorder [Unknown]
  - Infection [Fatal]
  - Disease recurrence [Unknown]
  - General physical health deterioration [Unknown]
  - Anaemia [Unknown]
  - Febrile neutropenia [Unknown]
  - Multi-organ failure [Unknown]
  - Pyrexia [Unknown]
  - Thrombocytopenia [Unknown]
  - Disease progression [Unknown]
